FAERS Safety Report 4382521-3 (Version None)
Quarter: 2004Q2

REPORT INFORMATION
  Report Type: 
  Country: None (occurrence: None)
  Receive Date: 20040614
  Receipt Date: 20040527
  Transmission Date: 20050107
  Serious: Yes (Death)
  Sender: FDA-Public Use
  Company Number: 237325

PATIENT
  Age: 67 Year
  Sex: Female

DRUGS (1)
  1. NOVOSEVEN [Suspect]
     Indication: ARTERIAL BYPASS OPERATION
     Dosage: INTRAVENOUS
     Route: 042

REACTIONS (1)
  - CARDIAC ARREST [None]
